FAERS Safety Report 6018800-3 (Version None)
Quarter: 2008Q4

REPORT INFORMATION
  Report Type: 
  Country: None (occurrence: None)
  Receive Date: 20081222
  Receipt Date: 20081209
  Transmission Date: 20090506
  Serious: Yes (Other)
  Sender: FDA-Public Use
  Company Number: 2008SP003116

PATIENT
  Age: 2 Year
  Sex: Male
  Weight: 12.7 kg

DRUGS (3)
  1. XOPENEX [Suspect]
     Indication: BREATH SOUNDS ABNORMAL
     Dosage: 1.25 MG/3ML; PRN; INHALATION
     Route: 055
     Dates: start: 20081208, end: 20081208
  2. XOPENEX [Suspect]
     Indication: DYSPNOEA
     Dosage: 1.25 MG/3ML; PRN; INHALATION
     Route: 055
     Dates: start: 20081208, end: 20081208
  3. XOPENEX [Suspect]
     Indication: INTERCOSTAL RETRACTION
     Dosage: 1.25 MG/3ML; PRN; INHALATION
     Route: 055
     Dates: start: 20081208, end: 20081208

REACTIONS (5)
  - HEART RATE DECREASED [None]
  - PALLOR [None]
  - RESPIRATORY ARREST [None]
  - SYNCOPE [None]
  - VOMITING [None]
